FAERS Safety Report 12907034 (Version 3)
Quarter: 2016Q4

REPORT INFORMATION
  Report Type: Report from Study
  Country: US (occurrence: US)
  Receive Date: 20161103
  Receipt Date: 20161205
  Transmission Date: 20170207
  Serious: Yes (Death)
  Sender: FDA-Public Use
  Company Number: US-ASTRAZENECA-2016SF11446

PATIENT
  Age: 1031 Month
  Sex: Female
  Weight: 83.9 kg

DRUGS (10)
  1. NUDEXTA [Concomitant]
     Indication: DEMENTIA
     Dosage: 20/10 MG, TWICE DAILY
     Route: 048
     Dates: start: 201602
  2. PREDNISONE. [Concomitant]
     Active Substance: PREDNISONE
     Indication: ASTHMA
     Route: 048
  3. OTC ALLERGY MEDICATION [Concomitant]
     Route: 048
  4. SEROQUEL [Suspect]
     Active Substance: QUETIAPINE FUMARATE
     Indication: AGGRESSION
     Dosage: ONE TAB IN THE MORNING, ONE AND A HALF TAB IN THE AFTERNOON, AND ONE AND HALF TAB IN THE EVENING
     Route: 048
     Dates: start: 201501
  5. NUDEXTA [Concomitant]
     Indication: DEMENTIA ALZHEIMER^S TYPE
     Dosage: 20/10 MG, TWICE DAILY
     Route: 048
     Dates: start: 201602
  6. LASIX [Concomitant]
     Active Substance: FUROSEMIDE
     Indication: FLUID IMBALANCE
     Route: 048
     Dates: start: 201603
  7. ALPROZOLAM [Concomitant]
     Active Substance: ALPRAZOLAM
     Indication: ANXIETY
     Route: 048
     Dates: start: 2014
  8. ALBUTEROL. [Concomitant]
     Active Substance: ALBUTEROL
     Dosage: AS REQUIRED
     Route: 048
  9. SYMBICORT [Suspect]
     Active Substance: BUDESONIDE\FORMOTEROL FUMARATE DIHYDRATE
     Indication: EMPHYSEMA
     Dosage: 160/4.5 MCG, TWO PUFFS EVERY TWELVE HOURS
     Route: 055
     Dates: start: 201608
  10. ALPROZOLAM [Concomitant]
     Active Substance: ALPRAZOLAM
     Indication: HALLUCINATION
     Route: 048
     Dates: start: 2014

REACTIONS (5)
  - Off label use [Unknown]
  - Death [Fatal]
  - Product use issue [Unknown]
  - Asthma [Unknown]
  - Emphysema [Unknown]

NARRATIVE: CASE EVENT DATE: 201603
